FAERS Safety Report 6534599-6 (Version None)
Quarter: 2010Q1

REPORT INFORMATION
  Report Type: 
  Country: None (occurrence: None)
  Receive Date: 20100112
  Receipt Date: 20100111
  Transmission Date: 20100710
  Serious: Yes (Other)
  Sender: FDA-Public Use
  Company Number: A0838749A

PATIENT

DRUGS (1)
  1. VALTREX [Suspect]
     Indication: EYE INFECTION
     Dosage: 4G PER DAY
     Route: 048

REACTIONS (1)
  - MACROCYTOSIS [None]
